FAERS Safety Report 7437226-9 (Version None)
Quarter: 2011Q2

REPORT INFORMATION
  Report Type: 
  Country: None (occurrence: None)
  Receive Date: 20110426
  Receipt Date: 20110420
  Transmission Date: 20111010
  Serious: Yes (Other)
  Sender: FDA-Public Use
  Company Number: NL-TEVA-276893ISR

PATIENT

DRUGS (1)
  1. METOPROLOL [Suspect]

REACTIONS (2)
  - CARDIOMYOPATHY [None]
  - DRUG WITHDRAWAL SYNDROME [None]
